FAERS Safety Report 5325553-0 (Version None)
Quarter: 2007Q2

REPORT INFORMATION
  Report Type: 
  Country: None (occurrence: None)
  Receive Date: 20070515
  Receipt Date: 20070510
  Transmission Date: 20071010
  Serious: Yes (Hospitalization, Other)
  Sender: FDA-Public Use
  Company Number: US-PFIZER INC-2005069201

PATIENT
  Sex: Female
  Weight: 80.8 kg

DRUGS (15)
  1. CELEBREX [Suspect]
     Indication: ARTHRITIS
     Dosage: FREQ:UNKNOWN
     Route: 048
  2. BEXTRA [Suspect]
     Indication: ARTHRITIS
     Dosage: FREQ:UNKNOWN
     Route: 048
  3. VIOXX [Suspect]
     Indication: ARTHRITIS
     Route: 048
  4. TUMS E-X [Suspect]
     Indication: DYSPEPSIA
     Route: 048
  5. NORVASC [Concomitant]
  6. LIPITOR [Concomitant]
  7. SYNTHROID [Concomitant]
  8. TOPROL-XL [Concomitant]
     Route: 065
  9. ZANTAC [Concomitant]
  10. ASPIRIN [Concomitant]
  11. AVANDIA [Concomitant]
  12. IMDUR [Concomitant]
  13. ALTACE [Concomitant]
  14. PLAVIX [Concomitant]
  15. CATAPRES-TTS-1 [Concomitant]

REACTIONS (9)
  - ANAEMIA [None]
  - ARTHRITIS [None]
  - CHEST PAIN [None]
  - CORONARY ARTERY BYPASS [None]
  - CORONARY ARTERY STENOSIS [None]
  - MYOCARDIAL INFARCTION [None]
  - RENAL FAILURE ACUTE [None]
  - STENT PLACEMENT [None]
  - TOOTH INFECTION [None]
